FAERS Safety Report 8770488 (Version 2)
Quarter: 2012Q4

REPORT INFORMATION
  Report Type: 
  Country: US (occurrence: US)
  Receive Date: 20120906
  Receipt Date: 20120926
  Transmission Date: 20130627
  Serious: Yes (Other)
  Sender: FDA-Public Use
  Company Number: US-PFIZER INC-2012218684

PATIENT
  Age: 40 Year
  Sex: Male
  Weight: 122 kg

DRUGS (5)
  1. LYRICA [Suspect]
     Indication: DIABETIC NEUROPATHY
     Dosage: 200 mg, 2x/day
     Route: 048
     Dates: start: 2010, end: 2011
  2. LYRICA [Suspect]
     Indication: PAIN
     Dosage: 200 mg, 2x/day
     Route: 048
  3. LYRICA [Suspect]
     Indication: NEUROPATHY PERIPHERAL
  4. OXYCODONE [Concomitant]
     Indication: BACK DISORDER
     Dosage: 20 mg, 2x/day
  5. PROMETHAZINE HYDROCHLORIDE [Concomitant]
     Indication: NAUSEA
     Dosage: 25 mg, as needed

REACTIONS (8)
  - Withdrawal syndrome [Recovered/Resolved]
  - Dyspnoea [Recovered/Resolved]
  - Anxiety [Recovered/Resolved]
  - Depressed mood [Recovered/Resolved]
  - Feeling abnormal [Recovered/Resolved]
  - Insomnia [Recovered/Resolved]
  - Feeling of body temperature change [Recovered/Resolved]
  - Hyperhidrosis [Recovered/Resolved]
